FAERS Safety Report 9783272 (Version 2)
Quarter: 2014Q1

REPORT INFORMATION
  Report Type: Spontaneous
  Country: NO (occurrence: NO)
  Receive Date: 20131226
  Receipt Date: 20140103
  Transmission Date: 20141002
  Serious: Yes (Hospitalization, Other)
  Sender: FDA-Public Use
  Company Number: NO-PFIZER INC-2013367105

PATIENT
  Age: 84 Year
  Sex: Female

DRUGS (2)
  1. LYRICA [Suspect]
     Dosage: 450 MG PER DAY
     Route: 048
  2. ALBYL-E [Concomitant]
     Route: 048

REACTIONS (5)
  - Cognitive disorder [Unknown]
  - Fall [Unknown]
  - Confusional state [Unknown]
  - Dehydration [Unknown]
  - Pain [Unknown]
